FAERS Safety Report 11316637 (Version 1)
Quarter: 2015Q3

REPORT INFORMATION
  Report Type: Spontaneous
  Country: US (occurrence: US)
  Receive Date: 20150728
  Receipt Date: 20150728
  Transmission Date: 20151125
  Serious: No
  Sender: FDA-Public Use
  Company Number: US-B.I. PHARMACEUTICALS,INC./RIDGEFIELD-2015-BI-38542BP

PATIENT
  Age: 79 Year
  Sex: Male
  Weight: 102 kg

DRUGS (3)
  1. SPIRIVA [Suspect]
     Active Substance: TIOTROPIUM BROMIDE MONOHYDRATE
     Indication: EMPHYSEMA
     Dosage: 5 MCG
     Route: 055
     Dates: start: 20150603
  2. ATORVASTATIN [Concomitant]
     Active Substance: ATORVASTATIN
     Indication: BLOOD CHOLESTEROL INCREASED
     Dosage: 20 MG
     Route: 048
  3. VALSARTAN. [Concomitant]
     Active Substance: VALSARTAN
     Indication: HYPERTENSION
     Dosage: STRENGTH: 160 - 12.5; DAILY DOSE: 160 - 12.5
     Route: 048

REACTIONS (2)
  - Balance disorder [Unknown]
  - Dizziness [Unknown]

NARRATIVE: CASE EVENT DATE: 20150710
